FAERS Safety Report 17430633 (Version 4)
Quarter: 2020Q1

REPORT INFORMATION
  Report Type: Report from Study
  Country: CO (occurrence: CO)
  Receive Date: 20200218
  Receipt Date: 20200324
  Transmission Date: 20200409
  Serious: Yes (Death, Hospitalization, Other)
  Sender: FDA-Public Use
  Company Number: NVSC2020CO041573

PATIENT
  Age: 64 Year
  Sex: Female

DRUGS (3)
  1. REVOLADE [Suspect]
     Active Substance: ELTROMBOPAG
     Indication: THROMBOCYTOPENIA
     Dosage: 50 MG
     Route: 048
  2. REVOLADE [Suspect]
     Active Substance: ELTROMBOPAG
     Dosage: UNK
     Route: 048
  3. REVOLADE [Suspect]
     Active Substance: ELTROMBOPAG
     Dosage: 25 MG, QD
     Route: 048

REACTIONS (13)
  - Dysarthria [Unknown]
  - Haemorrhage [Unknown]
  - Depressed level of consciousness [Unknown]
  - Gait disturbance [Unknown]
  - Overdose [Unknown]
  - General physical condition abnormal [Unknown]
  - Crying [Unknown]
  - Tremor [Unknown]
  - Weight increased [Unknown]
  - Ill-defined disorder [Unknown]
  - Death [Fatal]
  - Sedation [Unknown]
  - Feeling of despair [Unknown]

NARRATIVE: CASE EVENT DATE: 20200313
